FAERS Safety Report 4573856-X (Version None)
Quarter: 2005Q1

REPORT INFORMATION
  Report Type: 
  Country: None (occurrence: None)
  Receive Date: 20050203
  Receipt Date: 20050118
  Transmission Date: 20050727
  Serious: Yes (Other)
  Sender: FDA-Public Use
  Company Number: PHBS2005US01318

PATIENT
  Age: 46 Year
  Sex: Male

DRUGS (2)
  1. VISUDYNE [Suspect]
     Indication: CHOROIDAL NEOVASCULARISATION
  2. ASPIRIN [Concomitant]

REACTIONS (2)
  - CHOROIDAL NEOVASCULARISATION [None]
  - RETINAL DEGENERATION [None]
